FAERS Safety Report 22289228 (Version 5)
Quarter: 2024Q4

REPORT INFORMATION
  Report Type: Report from Study
  Country: DE (occurrence: DE)
  Receive Date: 20230505
  Receipt Date: 20241205
  Transmission Date: 20250115
  Serious: Yes (Other)
  Sender: MYLAN
  Company Number: DE-ROCHE-2794443

PATIENT
  Age: 26 Year
  Sex: Female

DRUGS (4)
  1. MIRTAZAPINE [Suspect]
     Active Substance: MIRTAZAPINE
     Indication: Product used for unknown indication
     Dosage: 5 MILLIGRAM
     Route: 065
     Dates: start: 20230127, end: 20230128
  2. OCREVUS [Suspect]
     Active Substance: OCRELIZUMAB
     Indication: Relapsing-remitting multiple sclerosis
     Dosage: 300 MILLIGRAM, BIWEEKLY (MAINTENANCE DOSE ON 26/JUL/2023)
     Route: 042
     Dates: start: 20210210
  3. COMIRNATY (TOZINAMERAN) [Suspect]
     Active Substance: TOZINAMERAN
     Indication: COVID-19 immunisation
     Dosage: UNK
     Route: 065
  4. Maxim [Concomitant]
     Indication: Contraception
     Dosage: UNK
     Route: 065

REACTIONS (28)
  - Multiple sclerosis [Not Recovered/Not Resolved]
  - Gastrointestinal fungal infection [Recovered/Resolved]
  - Suicidal ideation [Recovered/Resolved]
  - Negative thoughts [Recovered/Resolved]
  - Dyspareunia [Recovered/Resolved]
  - Depression [Recovering/Resolving]
  - Vulvovaginal dryness [Recovered/Resolved]
  - Dysbiosis [Recovered/Resolved]
  - Abdominal distension [Recovered/Resolved]
  - Pain in extremity [Recovered/Resolved]
  - Feeling hot [Recovered/Resolved]
  - Sensory disturbance [Recovered/Resolved]
  - Apathy [Recovered/Resolved]
  - Sensitivity to weather change [Recovered/Resolved]
  - Cystitis noninfective [Recovered/Resolved]
  - Cardiovascular disorder [Recovered/Resolved]
  - Initial insomnia [Recovered/Resolved]
  - Middle insomnia [Recovered/Resolved]
  - Headache [Not Recovered/Not Resolved]
  - Paraesthesia [Not Recovered/Not Resolved]
  - Fatigue [Recovered/Resolved]
  - Dizziness [Unknown]
  - Muscular weakness [Recovered/Resolved]
  - Visual impairment [Recovered/Resolved]
  - COVID-19 [Recovered/Resolved]
  - Inappropriate schedule of product administration [Unknown]
  - Animal bite [Unknown]
  - Peripheral swelling [Recovered/Resolved]

NARRATIVE: CASE EVENT DATE: 20210217
